FAERS Safety Report 24267760 (Version 1)
Quarter: 2024Q3

REPORT INFORMATION
  Report Type: Spontaneous
  Country: CN (occurrence: CN)
  Receive Date: 20240830
  Receipt Date: 20240830
  Transmission Date: 20241017
  Serious: Yes (Other)
  Sender: JIANGSU HENGRUI MEDICINE
  Company Number: CN-Jiangsu Hengrui Medicine Co., Ltd.-2161019

PATIENT
  Age: 26 Year
  Sex: Female
  Weight: 72 kg

DRUGS (1)
  1. IODIXANOL [Suspect]
     Active Substance: IODIXANOL
     Indication: Computerised tomogram
     Dates: start: 20240716, end: 20240716

REACTIONS (3)
  - Swelling face [Recovered/Resolved]
  - Peripheral swelling [Recovered/Resolved]
  - Ear swelling [Recovered/Resolved]

NARRATIVE: CASE EVENT DATE: 20240716
